FAERS Safety Report 14360070 (Version 1)
Quarter: 2018Q1

REPORT INFORMATION
  Report Type: Spontaneous
  Country: IT (occurrence: IT)
  Receive Date: 20180105
  Receipt Date: 20180105
  Transmission Date: 20180509
  Serious: Yes (Death, Hospitalization)
  Sender: FDA-Public Use
  Company Number: IT-SUN PHARMACEUTICAL INDUSTRIES LTD-2017R1-155772

PATIENT
  Age: 91 Year
  Sex: Male
  Weight: 76 kg

DRUGS (2)
  1. PREDNISONE. [Suspect]
     Active Substance: PREDNISONE
     Indication: AUTOIMMUNE HAEMOLYTIC ANAEMIA
     Dosage: 25 MG, DAILY
     Route: 065
  2. PREDNISONE. [Suspect]
     Active Substance: PREDNISONE
     Dosage: CUTTING DOWN THE DOSAGE BY HALF EVERY WEEK
     Route: 065

REACTIONS (2)
  - Bacteraemia [Fatal]
  - Nocardiosis [Fatal]

NARRATIVE: CASE EVENT DATE: 2012
